FAERS Safety Report 8252029-3 (Version None)
Quarter: 2012Q2

REPORT INFORMATION
  Report Type: 
  Country: None (occurrence: None)
  Receive Date: 20120402
  Receipt Date: 20110304
  Transmission Date: 20120825
  Serious: No
  Sender: FDA-Public Use
  Company Number: US-ABBOTT-11P-163-0804252-00

PATIENT
  Age: 65 Year
  Sex: Male
  Weight: 69.09 kg

DRUGS (5)
  1. TESTOSTERONE [Suspect]
     Indication: BLOOD TESTOSTERONE DECREASED
     Dosage: DAILY DOSE: 1 DOSAGE FORM, PACKETS
     Route: 062
     Dates: start: 20010101
  2. TESTOSTERONE [Suspect]
     Dosage: DAILY DOSE: 2 DOSAGE FORM, PACKETS
     Route: 062
     Dates: end: 20100101
  3. TESTOSTERONE [Suspect]
     Dosage: DAILY DOSE: 5 GRAM(S), VIA PUMP
     Route: 062
     Dates: start: 20100101, end: 20100101
  4. METFORMIN [Concomitant]
     Indication: DIABETES MELLITUS
     Dosage: DAILY DOSE:  UNKNOWN
     Route: 065
  5. TESTOSTERONE [Suspect]
     Dosage: DAILY DOSE: 10 GRAM(S), VIA PUMP
     Route: 062
     Dates: start: 20101201

REACTIONS (1)
  - DRUG INEFFECTIVE [None]
